FAERS Safety Report 8925856 (Version 1)
Quarter: 2012Q4

REPORT INFORMATION
  Report Type: 
  Country: FR (occurrence: FR)
  Receive Date: 20121126
  Receipt Date: 20121126
  Transmission Date: 20130627
  Serious: Yes (Hospitalization)
  Sender: FDA-Public Use
  Company Number: FR-B.I. PHARMACEUTICALS,INC./RIDGEFIELD-2012-FF-01650FF

PATIENT
  Age: 73 Year
  Sex: Male

DRUGS (5)
  1. PRADAXA [Suspect]
     Route: 048
     Dates: start: 20111117, end: 20121012
  2. CORDARONE [Suspect]
     Indication: ATRIAL FIBRILLATION
     Route: 048
     Dates: start: 20111220, end: 20120916
  3. CELECTOL [Suspect]
     Indication: ATRIAL FIBRILLATION
     Route: 048
     Dates: start: 20120202, end: 20121012
  4. ALDACTONE [Suspect]
     Indication: HYPERTENSION
     Route: 048
     Dates: start: 20110110, end: 20121012
  5. RILMENIDINE [Suspect]
     Route: 048
     Dates: start: 20111117, end: 20121012

REACTIONS (1)
  - Interstitial lung disease [Not Recovered/Not Resolved]
